FAERS Safety Report 10308563 (Version 1)
Quarter: 2014Q3

REPORT INFORMATION
  Report Type: Report from Study
  Country: US (occurrence: US)
  Receive Date: 20140716
  Receipt Date: 20140716
  Transmission Date: 20150326
  Serious: Yes (Other)
  Sender: FDA-Public Use
  Company Number: PHHY2013US158047

PATIENT
  Sex: Female

DRUGS (33)
  1. XOLAIR [Suspect]
     Active Substance: OMALIZUMAB
     Dosage: 300 MG, EVERY FOUR WEEKS
     Route: 058
     Dates: start: 20120409
  2. OMNARIS [Concomitant]
     Active Substance: CICLESONIDE
     Dosage: UNK UKN, BID
     Route: 045
  3. IPRATROPIUM [Concomitant]
     Active Substance: IPRATROPIUM
     Dosage: UNK UKN, 1 IN 6 HR
     Route: 045
  4. XLEAR NASAL WASH [Concomitant]
     Dosage: UNK UKN, AS NEEDED
     Route: 045
  5. PEPCID AC [Concomitant]
     Active Substance: FAMOTIDINE
     Dosage: UNK UKN,1IN 12 HOUR
     Route: 048
  6. PERIACTIN [Concomitant]
     Active Substance: CYPROHEPTADINE HYDROCHLORIDE
     Dosage: 4 MG, BID
     Route: 048
  7. AFRINE [Concomitant]
     Dosage: UNK UKN, 1-2 SPRAYS AS NEEDED
  8. SYMBICORT [Concomitant]
     Active Substance: BUDESONIDE\FORMOTEROL FUMARATE DIHYDRATE
     Dosage: UNK UKN, BID
  9. XOLAIR [Suspect]
     Active Substance: OMALIZUMAB
     Indication: RHINITIS ALLERGIC
     Dosage: 300 MG, EVERY FOUR WEEKS
     Route: 058
     Dates: start: 20110815
  10. ZITHROMAX [Concomitant]
     Active Substance: AZITHROMYCIN DIHYDRATE
     Dosage: UNK UKN, UNK
  11. ASTELIN [Concomitant]
     Active Substance: AZELASTINE HYDROCHLORIDE
     Dosage: 137 UG, BID
  12. XOLAIR [Suspect]
     Active Substance: OMALIZUMAB
     Indication: ASTHMA
     Dosage: 300 MG, EVERY FOUR WEEKS
     Route: 058
  13. OPTIVAR [Concomitant]
     Active Substance: AZELASTINE HYDROCHLORIDE
     Dosage: UNK UKN, BID
     Route: 047
  14. SUDAFED [Concomitant]
     Active Substance: PSEUDOEPHEDRINE HYDROCHLORIDE
     Dosage: 30 MG, UNK
     Route: 048
  15. XYZAL [Concomitant]
     Active Substance: LEVOCETIRIZINE DIHYDROCHLORIDE
     Dosage: 5 MG, QD
     Route: 048
  16. XOLAIR [Suspect]
     Active Substance: OMALIZUMAB
     Dosage: 300 MG, EVERY FOUR WEEKS
     Route: 058
     Dates: start: 20130108
  17. ACAPELLA [Concomitant]
     Dosage: UNK UKN, UNK
  18. ALVESCO [Concomitant]
     Active Substance: CICLESONIDE
     Dosage: 160 UG, BID
  19. ALLEGRA [Concomitant]
     Active Substance: FEXOFENADINE HYDROCHLORIDE
     Dosage: UNK UKN, BID
     Route: 048
  20. XOPENEX [Concomitant]
     Active Substance: LEVALBUTEROL HYDROCHLORIDE
     Dosage: 0.3 UG, UNK
  21. TESSALON [Concomitant]
     Active Substance: BENZONATATE
     Dosage: 100 MG, TID
  22. PATANASE [Concomitant]
     Active Substance: OLOPATADINE HYDROCHLORIDE
     Dosage: 0.6 %, BID
     Route: 045
  23. TUSSIONEX PENNKINETIC [Concomitant]
     Active Substance: CHLORPHENIRAMINE\HYDROCODONE
     Dosage: 1 TSP, BID
  24. AYR SALINE [Concomitant]
     Dosage: UNK UKN, TID
     Route: 045
  25. KEFLEX [Concomitant]
     Active Substance: CEPHALEXIN
     Dosage: UNK UKN, UNK
  26. COMBIVENT [Concomitant]
     Active Substance: ALBUTEROL SULFATE\IPRATROPIUM BROMIDE
     Dosage: UNK UKN, UNK
  27. SPIRIVA [Concomitant]
     Active Substance: TIOTROPIUM BROMIDE MONOHYDRATE
     Dosage: 18 UG, QD
  28. HYDROXYZINE [Concomitant]
     Active Substance: HYDROXYZINE\HYDROXYZINE HYDROCHLORIDE
     Dosage: 10 MG, QD
     Route: 048
  29. PROAIR HFA [Concomitant]
     Active Substance: ALBUTEROL SULFATE
     Dosage: 108 UG, UNK
  30. ZITHROMAX [Concomitant]
     Active Substance: AZITHROMYCIN DIHYDRATE
     Dosage: UNK UKN, UNK
  31. CLONAZEPAM. [Suspect]
     Active Substance: CLONAZEPAM
     Dosage: 0.5 MG, UNK
     Route: 048
  32. FLONASE [Concomitant]
     Active Substance: FLUTICASONE PROPIONATE
     Dosage: 50 UG, QD
  33. CYPROHEPTADINE HCL [Concomitant]
     Dosage: 4 MG, BID

REACTIONS (15)
  - Malignant peritoneal neoplasm [Unknown]
  - Lymphadenopathy [Unknown]
  - Sputum discoloured [Unknown]
  - Ear pain [Unknown]
  - Haemoptysis [Unknown]
  - Increased viscosity of nasal secretion [Unknown]
  - Bronchitis [Unknown]
  - Cough [Unknown]
  - Tympanic membrane perforation [Unknown]
  - Balance disorder [Unknown]
  - Arthralgia [Unknown]
  - Fatigue [Unknown]
  - Tympanic membrane scarring [Unknown]
  - Vocal cord disorder [Unknown]
  - Snoring [Unknown]
